FAERS Safety Report 5159576-1 (Version None)
Quarter: 2006Q4

REPORT INFORMATION
  Report Type: 
  Country: None (occurrence: None)
  Receive Date: 20061120
  Receipt Date: 20061109
  Transmission Date: 20070319
  Serious: Yes (Hospitalization)
  Sender: FDA-Public Use
  Company Number: 2003IM000194

PATIENT
  Age: 57 Year
  Sex: Male

DRUGS (7)
  1. ACTIMMUNE [Suspect]
     Indication: IDIOPATHIC PULMONARY FIBROSIS
     Dosage: 200 UG, TIW, SUBCUTANEOUS
     Route: 058
     Dates: start: 20021111, end: 20030201
  2. PREDNISONE TAB [Concomitant]
  3. ASPIRIN [Concomitant]
  4. IBUPROFEN [Concomitant]
  5. AZATHIOPRINE [Concomitant]
  6. MINOCYCLINE HCL [Concomitant]
  7. SIMVASTATIN [Concomitant]

REACTIONS (8)
  - CHILLS [None]
  - CONDITION AGGRAVATED [None]
  - DYSPNOEA [None]
  - FACIAL PAIN [None]
  - MANTLE CELL LYMPHOMA [None]
  - POST PROCEDURAL COMPLICATION [None]
  - PYREXIA [None]
  - SINUS DISORDER [None]
